FAERS Safety Report 24289918 (Version 1)
Quarter: 2024Q3

REPORT INFORMATION
  Report Type: Spontaneous
  Country: FR (occurrence: FR)
  Receive Date: 20240906
  Receipt Date: 20240906
  Transmission Date: 20241016
  Serious: Yes (Other)
  Sender: STRIDES
  Company Number: FR-STRIDES ARCOLAB LIMITED-2024SP011149

PATIENT
  Age: 50 Year
  Sex: Female

DRUGS (17)
  1. METHOTREXATE [Interacting]
     Active Substance: METHOTREXATE
     Indication: Rheumatoid arthritis
     Dosage: UNK
     Route: 048
  2. OMEPRAZOLE [Interacting]
     Active Substance: OMEPRAZOLE
     Indication: Gastrooesophageal reflux disease
     Dosage: UNK
     Route: 065
  3. CHOLECALCIFEROL [Suspect]
     Active Substance: CHOLECALCIFEROL
     Indication: Vitamin supplementation
     Dosage: UNK
     Route: 065
  4. ALTHIAZIDE\SPIRONOLACTONE [Interacting]
     Active Substance: ALTHIAZIDE\SPIRONOLACTONE
     Indication: Hypertension
     Dosage: UNK
     Route: 065
  5. ALTHIAZIDE\SPIRONOLACTONE [Interacting]
     Active Substance: ALTHIAZIDE\SPIRONOLACTONE
     Indication: Arrhythmia
  6. PAZOPANIB [Interacting]
     Active Substance: PAZOPANIB
     Indication: Myxofibrosarcoma
     Dosage: 600 MILLIGRAM, QD
     Route: 065
  7. PAZOPANIB [Interacting]
     Active Substance: PAZOPANIB
     Indication: Metastasis
     Dosage: 800 MILLIGRAM, QD
     Route: 065
  8. PAZOPANIB [Interacting]
     Active Substance: PAZOPANIB
     Dosage: 1200 MILLIGRAM, QD
     Route: 065
  9. PAZOPANIB [Interacting]
     Active Substance: PAZOPANIB
     Dosage: 600 MILLIGRAM, BID
     Route: 065
  10. RAMIPRIL [Interacting]
     Active Substance: RAMIPRIL
     Indication: Hypertension
     Dosage: UNK
     Route: 065
  11. RAMIPRIL [Interacting]
     Active Substance: RAMIPRIL
     Indication: Arrhythmia
  12. FOLIC ACID [Suspect]
     Active Substance: FOLIC ACID
     Indication: Vitamin supplementation
     Dosage: UNK
     Route: 065
  13. LEVOTHYROXINE [Suspect]
     Active Substance: LEVOTHYROXINE\LEVOTHYROXINE SODIUM
     Indication: Hypothyroidism
     Dosage: UNK
     Route: 065
  14. PROPRANOLOL [Suspect]
     Active Substance: PROPRANOLOL HYDROCHLORIDE
     Indication: Hypertension
     Dosage: UNK
     Route: 065
  15. PROPRANOLOL [Suspect]
     Active Substance: PROPRANOLOL HYDROCHLORIDE
     Indication: Arrhythmia
  16. DESLORATADINE [Suspect]
     Active Substance: DESLORATADINE
     Indication: Product used for unknown indication
     Dosage: UNK
     Route: 065
  17. TINZAPARIN [Suspect]
     Active Substance: TINZAPARIN
     Indication: Product used for unknown indication
     Dosage: UNK
     Route: 065

REACTIONS (7)
  - Malabsorption [Unknown]
  - Diarrhoea [Unknown]
  - Nausea [Unknown]
  - Pancreas infection [Unknown]
  - Drug ineffective [Unknown]
  - Drug level decreased [Unknown]
  - Drug interaction [Unknown]
